FAERS Safety Report 19264355 (Version 2)
Quarter: 2022Q3

REPORT INFORMATION
  Report Type: Spontaneous
  Country: CA (occurrence: CA)
  Receive Date: 20210517
  Receipt Date: 20220708
  Transmission Date: 20221027
  Serious: Yes (Other)
  Sender: FDA-Public Use
  Company Number: CA-GLAXOSMITHKLINE-CACH2021028206

PATIENT

DRUGS (1)
  1. ADVIL [Suspect]
     Active Substance: IBUPROFEN
     Indication: Product used for unknown indication
     Dosage: TOOK 2-3 GELCAPS
     Dates: start: 20210401

REACTIONS (2)
  - Choking [Unknown]
  - Product size issue [Unknown]

NARRATIVE: CASE EVENT DATE: 20210401
